FAERS Safety Report 16381371 (Version 1)
Quarter: 2019Q2

REPORT INFORMATION
  Report Type: Spontaneous
  Country: ES (occurrence: ES)
  Receive Date: 20190603
  Receipt Date: 20190603
  Transmission Date: 20190711
  Serious: Yes (Hospitalization)
  Sender: FDA-Public Use
  Company Number: ES-TEVA-2019-ES-1057239

PATIENT
  Age: 35 Year
  Sex: Female

DRUGS (2)
  1. AUGMENTINE [AMOXICILLIN;CLAVULANIC ACID] [Suspect]
     Active Substance: AMOXICILLIN\CLAVULANIC ACID
     Indication: PHARYNGITIS
     Route: 048
     Dates: start: 20190325, end: 20190325
  2. IBUPROFENO (1769A) [Suspect]
     Active Substance: IBUPROFEN
     Indication: PHARYNGITIS
     Route: 048
     Dates: start: 20190325, end: 20190325

REACTIONS (4)
  - Urticaria [Recovered/Resolved]
  - Oedema peripheral [Recovered/Resolved]
  - Anaphylactic reaction [Recovered/Resolved]
  - Erythema [Recovered/Resolved]

NARRATIVE: CASE EVENT DATE: 20190325
